FAERS Safety Report 23476663 (Version 1)
Quarter: 2024Q1

REPORT INFORMATION
  Report Type: Report from Study
  Country: US (occurrence: US)
  Receive Date: 20240204
  Receipt Date: 20240204
  Transmission Date: 20240410
  Serious: No
  Sender: FDA-Public Use
  Company Number: US-EXELIXIS-CABO-23063823

PATIENT
  Age: 75 Year
  Sex: Female
  Weight: 102.49 kg

DRUGS (13)
  1. CABOMETYX [Suspect]
     Active Substance: CABOZANTINIB S-MALATE
     Indication: Renal cell carcinoma
     Dosage: 40 MG
     Dates: start: 202210
  2. CABOMETYX [Suspect]
     Active Substance: CABOZANTINIB S-MALATE
     Dosage: 20 MG, QD
     Route: 048
     Dates: start: 20221130
  3. CABOMETYX [Suspect]
     Active Substance: CABOZANTINIB S-MALATE
     Dosage: CUTTING THOSE 40 MG PILLS IN HALF AND TAKING THEM 20 MG
     Dates: start: 20230626
  4. CABOMETYX [Suspect]
     Active Substance: CABOZANTINIB S-MALATE
     Dosage: 20 MG, QD
     Dates: start: 20230630
  5. OPDIVO [Suspect]
     Active Substance: NIVOLUMAB
     Indication: Renal cell carcinoma
     Dosage: UNK, Q4WEEKS
     Dates: start: 202210
  6. METOPROLOL SUCCINATE [Concomitant]
     Active Substance: METOPROLOL SUCCINATE
  7. XARELTO [Concomitant]
     Active Substance: RIVAROXABAN
  8. SYNTHROID [Concomitant]
     Active Substance: LEVOTHYROXINE SODIUM
  9. ROSUVASTATIN [Concomitant]
     Active Substance: ROSUVASTATIN
  10. LOSARTAN [Concomitant]
     Active Substance: LOSARTAN
  11. BIOTIN [Concomitant]
     Active Substance: BIOTIN
  12. VITAMIN D3 [Concomitant]
     Active Substance: CHOLECALCIFEROL
  13. MINOXIDIL [Concomitant]
     Active Substance: MINOXIDIL

REACTIONS (11)
  - Sleep disorder [Unknown]
  - Skin exfoliation [Unknown]
  - Diarrhoea [Unknown]
  - Blood pressure increased [Recovering/Resolving]
  - Taste disorder [Not Recovered/Not Resolved]
  - Alopecia [Recovered/Resolved]
  - Dry skin [Recovered/Resolved]
  - Weight decreased [Recovered/Resolved]
  - Decreased appetite [Recovered/Resolved]
  - Pruritus [Recovering/Resolving]
  - Wrong technique in product usage process [Unknown]

NARRATIVE: CASE EVENT DATE: 20230626
